FAERS Safety Report 3878344 (Version 3)
Quarter: 2015Q1

REPORT INFORMATION
  Report Type: Spontaneous
  Country: IT (occurrence: IT)
  Receive Date: 20021210
  Receipt Date: 20150106
  Transmission Date: 20150721
  Serious: No
  Sender: FDA-Public Use
  Company Number: PHBS2002IT14652

PATIENT
  Age: 66 Year
  Sex: Male

DRUGS (1)
  1. OXCARBAZEPINE. [Suspect]
     Active Substance: OXCARBAZEPINE
     Indication: EPILEPSY
     Dosage: 450 MG, QD
     Route: 065

REACTIONS (4)
  - Balance disorder [Unknown]
  - Somnolence [Unknown]
  - Sedation [Unknown]
  - Drug intolerance [Unknown]
